FAERS Safety Report 4689606-2 (Version None)
Quarter: 2005Q2

REPORT INFORMATION
  Report Type: 
  Country: None (occurrence: None)
  Receive Date: 20050614
  Receipt Date: 20050602
  Transmission Date: 20051028
  Serious: Yes (Life-Threatening, Other)
  Sender: FDA-Public Use
  Company Number: AU-JNJFOC-20050600659

PATIENT
  Sex: Female
  Weight: 58 kg

DRUGS (2)
  1. RISPERDAL [Suspect]
     Dosage: AT NIGHT
     Route: 049
  2. RISPERDAL [Suspect]
     Indication: SCHIZOPHRENIA
     Route: 049

REACTIONS (2)
  - BREAST CANCER [None]
  - METASTASES TO LUNG [None]
